FAERS Safety Report 5123080-7 (Version None)
Quarter: 2006Q4

REPORT INFORMATION
  Report Type: 
  Country: None (occurrence: None)
  Receive Date: 20061004
  Receipt Date: 20061004
  Transmission Date: 20070319
  Serious: Yes (Other)
  Sender: FDA-Public Use
  Company Number: None

PATIENT
  Sex: Female
  Weight: 68.0396 kg

DRUGS (2)
  1. LIPITOR [Suspect]
     Indication: BLOOD CHOLESTEROL INCREASED
     Dosage: 20MG 1 TIME DAILY PO
     Route: 048
     Dates: start: 20050805, end: 20060515
  2. LIPITOR [Suspect]
     Indication: BLOOD TRIGLYCERIDES INCREASED
     Dosage: 20MG 1 TIME DAILY PO
     Route: 048
     Dates: start: 20050805, end: 20060515

REACTIONS (2)
  - ABDOMINAL PAIN UPPER [None]
  - DEPRESSION [None]
